FAERS Safety Report 5830291-1 (Version None)
Quarter: 2008Q3

REPORT INFORMATION
  Report Type: 
  Country: None (occurrence: None)
  Receive Date: 20080801
  Receipt Date: 20080723
  Transmission Date: 20090109
  Serious: Yes (Hospitalization)
  Sender: FDA-Public Use
  Company Number: US-ABBOTT-08P-163-0465506-00

PATIENT

DRUGS (3)
  1. HUMIRA [Suspect]
     Indication: RHEUMATOID ARTHRITIS
     Route: 050
  2. HUMIRA [Suspect]
     Route: 050
  3. LEFLUNOMIDE [Concomitant]
     Indication: DRUG USE FOR UNKNOWN INDICATION

REACTIONS (5)
  - ANTINUCLEAR ANTIBODY INCREASED [None]
  - CANDIDIASIS [None]
  - DRUG INEFFECTIVE [None]
  - HOSPITALISATION [None]
  - RASH [None]
